FAERS Safety Report 9834559 (Version 1)
Quarter: 2014Q1

REPORT INFORMATION
  Report Type: Spontaneous
  Country: US (occurrence: US)
  Receive Date: 20140122
  Receipt Date: 20140122
  Transmission Date: 20141002
  Serious: No
  Sender: FDA-Public Use
  Company Number: US-009507513-1401USA005284

PATIENT
  Age: 58 Year
  Sex: Male

DRUGS (1)
  1. VICTRELIS [Suspect]
     Indication: HEPATITIS C
     Dosage: 800 MG, TID (EVERY 7-9 HOURS)
     Route: 048
     Dates: start: 20130930

REACTIONS (4)
  - Blood count abnormal [Unknown]
  - Cough [Unknown]
  - Pain [Unknown]
  - Arthritis [Unknown]
